FAERS Safety Report 4375907-4 (Version None)
Quarter: 2004Q2

REPORT INFORMATION
  Report Type: 
  Country: None (occurrence: None)
  Receive Date: 20040607
  Receipt Date: 20040525
  Transmission Date: 20050107
  Serious: Yes (Hospitalization)
  Sender: FDA-Public Use
  Company Number: 200410348BNE

PATIENT
  Age: 75 Year
  Sex: Male

DRUGS (9)
  1. ASPIRIN [Suspect]
     Indication: PROPHYLAXIS
     Dosage: 75 MG, TOTAL DAILY, ORAL
     Route: 048
     Dates: end: 20040423
  2. GLICLAZIDE [Concomitant]
  3. PIOGLITAZONE HCL [Concomitant]
  4. PRAVASTATIN [Concomitant]
  5. DOXAZOSIN [Concomitant]
  6. RAMIPRIL [Concomitant]
  7. TADALAFIL [Concomitant]
  8. FERROUS SULPHATE ANHYDROUS [Concomitant]
  9. ASCORBIC ACID [Concomitant]

REACTIONS (7)
  - ABDOMINAL DISTENSION [None]
  - ABNORMAL FAECES [None]
  - DUODENITIS [None]
  - GASTRIC ULCER [None]
  - GASTROINTESTINAL ULCER [None]
  - MELAENA [None]
  - RECTAL HAEMORRHAGE [None]
